FAERS Safety Report 20760819 (Version 1)
Quarter: 2022Q2

REPORT INFORMATION
  Report Type: Spontaneous
  Country: US (occurrence: US)
  Receive Date: 20220428
  Receipt Date: 20220428
  Transmission Date: 20220721
  Serious: No
  Sender: FDA-Public Use
  Company Number: US-TEVA-2022-US-2023541

PATIENT
  Age: 43 Year
  Sex: Female

DRUGS (1)
  1. AJOVY [Suspect]
     Active Substance: FREMANEZUMAB-VFRM
     Indication: Product used for unknown indication
     Dosage: FREMANEZUMAB-VFRM 225/1.5 MG/ML
     Route: 065
     Dates: start: 2019

REACTIONS (2)
  - Incorrect dose administered by device [Unknown]
  - Injection site extravasation [Unknown]
